FAERS Safety Report 13532744 (Version 1)
Quarter: 2017Q2

REPORT INFORMATION
  Report Type: Report from Study
  Country: TW (occurrence: TW)
  Receive Date: 20170510
  Receipt Date: 20170510
  Transmission Date: 20170830
  Serious: Yes (Hospitalization)
  Sender: FDA-Public Use
  Company Number: TW-ELI_LILLY_AND_COMPANY-TW201705000515

PATIENT
  Age: 61 Year
  Sex: Male

DRUGS (9)
  1. GEMCITABINE HYDROCHLORIDE. [Suspect]
     Active Substance: GEMCITABINE HYDROCHLORIDE
     Indication: TRANSITIONAL CELL CARCINOMA
     Dosage: 1000 MG/M2, DAYS 1 AND 8 OF EACH 21 DAY CYCLE
     Route: 042
     Dates: start: 20170126
  2. DIFENHIDRAMINA [Concomitant]
     Indication: PREMEDICATION
     Dosage: 30 MG, 1 IN 3 WEEKS
     Route: 042
     Dates: start: 20170126
  3. ESOMEPRAZOLE [Concomitant]
     Active Substance: ESOMEPRAZOLE
     Indication: PREMEDICATION
     Dosage: 40 MG, 1 IN 3 WEEKS
     Route: 042
     Dates: start: 20170126
  4. CARBOPLATIN. [Suspect]
     Active Substance: CARBOPLATIN
     Dosage: 244.8 MG, 1 IN 3 WEEKS
     Route: 042
  5. ULTRACET [Concomitant]
     Active Substance: ACETAMINOPHEN\TRAMADOL HYDROCHLORIDE
     Indication: TUMOUR PAIN
     Dosage: 1 DF, 4 IN 1 DAY
     Route: 048
     Dates: start: 20170110
  6. MAGNESIUM                          /07349401/ [Concomitant]
     Indication: CONSTIPATION
     Dosage: 500 MG, 3 IN 1 D
     Route: 048
     Dates: start: 20170316
  7. GRANISETRON [Concomitant]
     Active Substance: GRANISETRON
     Indication: PREMEDICATION
     Dosage: 3 MG, 1 IN 3 WEEKS
     Route: 042
     Dates: start: 20170126
  8. ATEZOLIZUMAB [Suspect]
     Active Substance: ATEZOLIZUMAB
     Indication: TRANSITIONAL CELL CARCINOMA
     Dosage: 1200 MG, 1 IN 3 WEEKS
     Route: 042
     Dates: start: 20170126
  9. CARBOPLATIN. [Suspect]
     Active Substance: CARBOPLATIN
     Indication: TRANSITIONAL CELL CARCINOMA
     Dosage: 1 IN 3 WEEKS( AIM 6 MG/ML/MIN)
     Route: 042
     Dates: start: 20170126

REACTIONS (2)
  - Pneumonia [Not Recovered/Not Resolved]
  - Septic shock [Not Recovered/Not Resolved]

NARRATIVE: CASE EVENT DATE: 20170417
